FAERS Safety Report 16197947 (Version 1)
Quarter: 2019Q2

REPORT INFORMATION
  Report Type: Spontaneous
  Country: JP (occurrence: JP)
  Receive Date: 20190415
  Receipt Date: 20190415
  Transmission Date: 20190711
  Serious: Yes (Hospitalization, Other)
  Sender: FDA-Public Use
  Company Number: JP-BAYER-2019-073612

PATIENT
  Sex: Female

DRUGS (1)
  1. YAZ [Suspect]
     Active Substance: DROSPIRENONE\ETHINYL ESTRADIOL
     Indication: PREMENSTRUAL SYNDROME
     Route: 048

REACTIONS (4)
  - Product use in unapproved indication [None]
  - Withdrawal bleed [Recovered/Resolved]
  - Procedural haemorrhage [None]
  - Ovarian enlargement [None]

NARRATIVE: CASE EVENT DATE: 20190409
